FAERS Safety Report 9934202 (Version 2)
Quarter: 2014Q2

REPORT INFORMATION
  Report Type: Spontaneous
  Country: BE (occurrence: BE)
  Receive Date: 20140228
  Receipt Date: 20140424
  Transmission Date: 20141212
  Serious: Yes (Hospitalization)
  Sender: FDA-Public Use
  Company Number: BE-JNJFOC-20140215235

PATIENT
  Age: 16 Year
  Sex: Female
  Weight: 43.7 kg

DRUGS (8)
  1. REMICADE [Suspect]
     Indication: CROHN^S DISEASE
     Dosage: ONCE EVERY 0,2 AND 6 WEEKS.
     Route: 042
     Dates: start: 20130503, end: 20130621
  2. REMICADE [Suspect]
     Indication: CROHN^S DISEASE
     Dosage: ONCE EVERY 0,2 AND 6 WEEKS.
     Route: 042
     Dates: start: 20140305
  3. REMICADE [Suspect]
     Indication: CROHN^S DISEASE
     Dosage: ONCE EVERY 0,2 AND 6 WEEKS.
     Route: 042
     Dates: start: 20140319
  4. IMURAN [Suspect]
     Indication: CROHN^S DISEASE
     Route: 065
     Dates: start: 2009
  5. IMURAN [Suspect]
     Indication: CROHN^S DISEASE
     Route: 065
     Dates: start: 20130402
  6. OMEPRAZOLE [Concomitant]
     Indication: GASTRIC ULCER
     Route: 065
     Dates: start: 20130425
  7. SINGULAIR [Concomitant]
     Indication: HYPERSENSITIVITY
     Route: 065
  8. ZYRTEC [Concomitant]
     Indication: HYPERSENSITIVITY
     Route: 065

REACTIONS (1)
  - Staphylococcal infection [Recovered/Resolved]
